FAERS Safety Report 5067077-4 (Version None)
Quarter: 2006Q3

REPORT INFORMATION
  Report Type: 
  Country: None (occurrence: None)
  Receive Date: 20060727
  Receipt Date: 20060714
  Transmission Date: 20061208
  Serious: Yes (Other)
  Sender: FDA-Public Use
  Company Number: 2006090014

PATIENT
  Age: 17 Year
  Sex: Male

DRUGS (2)
  1. PREDNISONE TAB [Suspect]
     Indication: SYSTEMIC LUPUS ERYTHEMATOSUS
     Dosage: 20 MG (20 MG, 1 IN 1 D)
  2. CYCLOPHOSPHAMIDE [Suspect]
     Indication: SYSTEMIC LUPUS ERYTHEMATOSUS
     Dosage: (1000 MG, EVEEY 6 WEEKS) INTRAVENOUS
     Route: 042

REACTIONS (3)
  - RENAL CELL CARCINOMA RECURRENT [None]
  - RENAL CELL CARCINOMA STAGE UNSPECIFIED [None]
  - RETROPERITONEAL NEOPLASM [None]
